FAERS Safety Report 5315537-0 (Version None)
Quarter: 2007Q2

REPORT INFORMATION
  Report Type: 
  Country: None (occurrence: None)
  Receive Date: 20070503
  Receipt Date: 20070425
  Transmission Date: 20071010
  Serious: Yes (Other)
  Sender: FDA-Public Use
  Company Number: US-JNJFOC-20070306387

PATIENT
  Sex: Male
  Weight: 102.51 kg

DRUGS (5)
  1. REMICADE [Suspect]
     Dosage: ON IT FOR 3 YEARS
     Route: 042
  2. REMICADE [Suspect]
     Indication: RHEUMATOID ARTHRITIS
     Dosage: DOSE INCREASED FROM 400 MG TO 500 MG IN DEC-2006; ON DRUG FOR 3 YEARS
     Route: 042
  3. ALBUTEROL [Concomitant]
     Indication: ASTHMA
  4. SPIREA [Concomitant]
     Indication: ASTHMA
  5. CELEBREX [Concomitant]
     Indication: RHEUMATOID ARTHRITIS

REACTIONS (3)
  - ERYTHEMA [None]
  - INFUSION RELATED REACTION [None]
  - RESPIRATORY DISTRESS [None]
